FAERS Safety Report 4809675-6 (Version None)
Quarter: 2005Q4

REPORT INFORMATION
  Report Type: 
  Country: None (occurrence: None)
  Receive Date: 20051021
  Receipt Date: 20040526
  Transmission Date: 20060501
  Serious: Yes (Other)
  Sender: FDA-Public Use
  Company Number: USA040568629

PATIENT
  Age: 45 Year
  Sex: Male
  Weight: 77 kg

DRUGS (6)
  1. ZYPREXA [Suspect]
     Indication: AGITATION
     Dosage: 10 MG DAY
     Dates: start: 20030101
  2. ZYPREXA [Suspect]
     Indication: DEMENTIA
     Dosage: 10 MG DAY
     Dates: start: 20030101
  3. FLUOXETINE [Suspect]
  4. DEPAKOTE [Concomitant]
  5. LANTUS [Concomitant]
  6. NOVOLOG [Concomitant]

REACTIONS (5)
  - DIABETES MELLITUS INADEQUATE CONTROL [None]
  - HAEMATOCRIT DECREASED [None]
  - HAEMOGLOBIN DECREASED [None]
  - PLATELET COUNT DECREASED [None]
  - WHITE BLOOD CELL COUNT DECREASED [None]
